FAERS Safety Report 16073917 (Version 2)
Quarter: 2019Q3

REPORT INFORMATION
  Report Type: Spontaneous
  Country: US (occurrence: US)
  Receive Date: 20190314
  Receipt Date: 20190903
  Transmission Date: 20191004
  Serious: No
  Sender: FDA-Public Use
  Company Number: US-PTC THERAPEUTICS, INC.-US-2018PTC001250

PATIENT
  Age: 20 Year
  Sex: Male

DRUGS (2)
  1. EMFLAZA [Suspect]
     Active Substance: DEFLAZACORT
     Indication: MUSCULAR DYSTROPHY
     Dosage: 2 ML, QD
     Route: 048
     Dates: start: 20181108
  2. EMFLAZA [Suspect]
     Active Substance: DEFLAZACORT
     Dosage: 1.5 ML, QD
     Route: 048

REACTIONS (3)
  - Pollakiuria [Unknown]
  - Nausea [Not Recovered/Not Resolved]
  - Weight increased [Unknown]

NARRATIVE: CASE EVENT DATE: 20181110
